FAERS Safety Report 17151207 (Version 3)
Quarter: 2020Q1

REPORT INFORMATION
  Report Type: Report from Study
  Country: JP (occurrence: JP)
  Receive Date: 20191213
  Receipt Date: 20200303
  Transmission Date: 20200409
  Serious: Yes (Other)
  Sender: FDA-Public Use
  Company Number: JP-ALEXION PHARMACEUTICALS INC.-A201918792

PATIENT

DRUGS (2)
  1. ULTOMIRIS [Suspect]
     Active Substance: RAVULIZUMAB-CWVZ
     Indication: PAROXYSMAL NOCTURNAL HAEMOGLOBINURIA
     Dosage: 3000 MG, Q2W
     Route: 042
     Dates: start: 20191114, end: 20191114
  2. ULTOMIRIS [Suspect]
     Active Substance: RAVULIZUMAB-CWVZ
     Dosage: 3300 MG, ONCE A EIGHT WEEK
     Route: 042
     Dates: start: 20191128, end: 20191128

REACTIONS (1)
  - Shock [Recovered/Resolved]

NARRATIVE: CASE EVENT DATE: 20191128
